FAERS Safety Report 15771958 (Version 1)
Quarter: 2018Q4

REPORT INFORMATION
  Report Type: Spontaneous
  Country: DE (occurrence: DE)
  Receive Date: 20181228
  Receipt Date: 20181228
  Transmission Date: 20190205
  Serious: Yes (Other)
  Sender: FDA-Public Use
  Company Number: DE-PROVELL PHARMACEUTICALS-2060660

PATIENT
  Sex: Female

DRUGS (4)
  1. EFEROX [Suspect]
     Active Substance: LEVOTHYROXINE SODIUM
  2. EUTHYROX [Suspect]
     Active Substance: LEVOTHYROXINE SODIUM
  3. EUTHYROX [Suspect]
     Active Substance: LEVOTHYROXINE SODIUM
     Indication: PRODUCT USED FOR UNKNOWN INDICATION
  4. EUTHYROX [Suspect]
     Active Substance: LEVOTHYROXINE SODIUM

REACTIONS (11)
  - Arthralgia [Not Recovered/Not Resolved]
  - Listless [None]
  - Gait disturbance [None]
  - Decreased activity [None]
  - Myalgia [Not Recovered/Not Resolved]
  - Gastric pH decreased [None]
  - Fatigue [None]
  - Cardiac disorder [None]
  - Asthenia [None]
  - Arthritis infective [None]
  - Memory impairment [None]
